FAERS Safety Report 9261404 (Version 2)
Quarter: 2015Q4

REPORT INFORMATION
  Report Type: Spontaneous
  Country: US (occurrence: US)
  Receive Date: 20130429
  Receipt Date: 20151215
  Transmission Date: 20160305
  Serious: Yes (Hospitalization, Other)
  Sender: FDA-Public Use
  Company Number: US-BAYER-USA-2002-006520

PATIENT
  Age: 46 Year
  Sex: Female
  Weight: 54.55 kg

DRUGS (4)
  1. ENTEX T [Concomitant]
     Active Substance: GUAIFENESIN\PSEUDOEPHEDRINE HYDROCHLORIDE
  2. YASMIN [Suspect]
     Active Substance: DROSPIRENONE\ETHINYL ESTRADIOL
     Dosage: 1 TAB, 1X/DAY
     Route: 048
     Dates: start: 20011008, end: 20020707
  3. ALLEGRA [Concomitant]
     Active Substance: FEXOFENADINE HYDROCHLORIDE
     Dosage: 180 MG DAILY
     Route: 048
  4. ADVICOR [Concomitant]
     Active Substance: LOVASTATIN\NIACIN

REACTIONS (3)
  - Cerebrovascular accident [Recovered/Resolved]
  - Embolism arterial [None]
  - Apolipoprotein A-I increased [Recovered/Resolved]

NARRATIVE: CASE EVENT DATE: 200207
